FAERS Safety Report 4491357-4 (Version None)
Quarter: 2004Q4

REPORT INFORMATION
  Report Type: 
  Country: None (occurrence: None)
  Receive Date: 20041101
  Receipt Date: 20041101
  Transmission Date: 20050328
  Serious: Yes (Other)
  Sender: FDA-Public Use
  Company Number: None

PATIENT
  Age: 30 Year
  Sex: Female
  Weight: 58 kg

DRUGS (1)
  1. NALMEFENE HYDROCHLORIDE [Suspect]
     Dosage: 10MG / 10 ML IVP X 1  (ONE TIME ONLY)
     Route: 042

REACTIONS (7)
  - ASTHENIA [None]
  - DIARRHOEA [None]
  - EPIGASTRIC DISCOMFORT [None]
  - FATIGUE [None]
  - LOOSE STOOLS [None]
  - NAUSEA [None]
  - VOMITING [None]
